FAERS Safety Report 11165152 (Version 1)
Quarter: 2015Q2

REPORT INFORMATION
  Report Type: Spontaneous
  Country: IT (occurrence: IT)
  Receive Date: 20150604
  Receipt Date: 20150604
  Transmission Date: 20150821
  Serious: Yes (Hospitalization)
  Sender: FDA-Public Use
  Company Number: IT-ABBVIE-15P-083-1403729-00

PATIENT
  Age: 86 Year

DRUGS (1)
  1. DUODOPA [Suspect]
     Active Substance: CARBIDOPA\LEVODOPA
     Indication: PARKINSON^S DISEASE
     Route: 065
     Dates: start: 201406

REACTIONS (1)
  - Device dislocation [Unknown]

NARRATIVE: CASE EVENT DATE: 2015
